FAERS Safety Report 5706020-9 (Version None)
Quarter: 2008Q2

REPORT INFORMATION
  Report Type: 
  Country: None (occurrence: None)
  Receive Date: 20080415
  Receipt Date: 20080403
  Transmission Date: 20081010
  Serious: No
  Sender: FDA-Public Use
  Company Number: GB-PFIZER INC-2008003634

PATIENT
  Age: 37 Year
  Sex: Female
  Weight: 65 kg

DRUGS (3)
  1. LYRICA [Suspect]
     Indication: NEURALGIA
     Route: 048
  2. AMITRIPTYLINE HCL [Concomitant]
     Indication: NEURALGIA
     Dosage: DAILY DOSE:60MG
     Route: 048
     Dates: start: 19890101, end: 20071129
  3. LEVOTHYROXINE SODIUM [Concomitant]
     Indication: HYPOTHYROIDISM
     Dosage: DAILY DOSE:150MG

REACTIONS (2)
  - NO ADVERSE EVENT [None]
  - PALPITATIONS [None]
